FAERS Safety Report 10496635 (Version 2)
Quarter: 2014Q4

REPORT INFORMATION
  Report Type: Spontaneous
  Country: JP (occurrence: JP)
  Receive Date: 20141006
  Receipt Date: 20141022
  Transmission Date: 20150528
  Serious: Yes (Other)
  Sender: FDA-Public Use
  Company Number: JP-ROCHE-1469052

PATIENT
  Age: 58 Year
  Sex: Female

DRUGS (1)
  1. TAMIFLU [Suspect]
     Active Substance: OSELTAMIVIR PHOSPHATE
     Indication: INFLUENZA
     Route: 048
     Dates: start: 20131118, end: 20131118

REACTIONS (3)
  - Haemorrhage subcutaneous [Unknown]
  - Loss of consciousness [Recovered/Resolved]
  - Lip injury [Unknown]

NARRATIVE: CASE EVENT DATE: 20131118
